FAERS Safety Report 15433930 (Version 1)
Quarter: 2018Q3

REPORT INFORMATION
  Report Type: Spontaneous
  Country: DE (occurrence: DE)
  Receive Date: 20180927
  Receipt Date: 20180927
  Transmission Date: 20181010
  Serious: Yes (Hospitalization, Other)
  Sender: FDA-Public Use
  Company Number: DE-GLAXOSMITHKLINE-B0485189A

PATIENT
  Age: 52 Year
  Sex: Female

DRUGS (5)
  1. LAMOTRIGINE. [Suspect]
     Active Substance: LAMOTRIGINE
     Indication: EPILEPSY
     Dosage: DAILY DOSE: 450 MG MILLIGRAM(S) EVERY DAY450?700 MG/DAY
     Route: 048
  2. LEVETIRACETAM. [Suspect]
     Active Substance: LEVETIRACETAM
     Indication: PARTIAL SEIZURES
     Dosage: DAILY DOSE: 4000.000 (E2B UNIT: 003)
     Route: 065
  3. VALPROIC ACID. [Suspect]
     Active Substance: VALPROIC ACID
     Indication: PARTIAL SEIZURES
     Dosage: DAILY DOSE: 600.000 (E2B UNIT: 003)
     Route: 065
  4. LEVETIRACETAM. [Suspect]
     Active Substance: LEVETIRACETAM
     Dosage: 4000 MG, UNK
     Route: 065
  5. RISPERIDONE. [Concomitant]
     Active Substance: RISPERIDONE
     Indication: PSYCHOTIC DISORDER
     Dosage: 0.5 MG, QD
     Route: 065

REACTIONS (12)
  - Abnormal behaviour [Recovered/Resolved]
  - Hallucination, auditory [Recovered/Resolved]
  - Attention-seeking behaviour [Recovered/Resolved]
  - Psychotic disorder [Recovered/Resolved]
  - Aggression [Recovered/Resolved]
  - Agitation [Recovered/Resolved]
  - Drug interaction [Recovered/Resolved]
  - Delusion [Unknown]
  - Seizure [Unknown]
  - Anticonvulsant drug level above therapeutic [Recovered/Resolved]
  - Sleep disorder [Unknown]
  - Delusion [Recovered/Resolved]
